FAERS Safety Report 16712949 (Version 2)
Quarter: 2020Q4

REPORT INFORMATION
  Report Type: Spontaneous
  Country: PL (occurrence: PL)
  Receive Date: 20190817
  Receipt Date: 20201130
  Transmission Date: 20210113
  Serious: Yes (Death, Hospitalization)
  Sender: FDA-Public Use
  Company Number: PL-AUROBINDO-AUR-APL-2019-053864

PATIENT
  Age: 85 Year
  Sex: Male

DRUGS (9)
  1. PERINDOPRIL [Suspect]
     Active Substance: PERINDOPRIL
     Indication: HYPERTENSION
  2. TORASEMID [Suspect]
     Active Substance: TORSEMIDE
     Indication: HYPERTENSION
  3. LEVOMEPROMAZINE [Concomitant]
     Active Substance: LEVOMEPROMAZINE
     Indication: PRODUCT USED FOR UNKNOWN INDICATION
     Dosage: LOW DOSE
     Route: 065
  4. TORASEMID [Suspect]
     Active Substance: TORSEMIDE
     Indication: CARDIAC FAILURE CHRONIC
     Dosage: UNK
     Route: 065
  5. ISOPHANE INSULIN [Concomitant]
     Active Substance: INSULIN NOS
     Indication: PRODUCT USED FOR UNKNOWN INDICATION
     Dosage: UNK
     Route: 065
  6. ISOPHANE INSULIN [Concomitant]
     Active Substance: INSULIN NOS
     Dosage: THERAPY WAS REDUCED TO ISOPHANE INSULIN IN ONE INJECTION IN THE EVENING
     Route: 065
  7. DEXAMETHASONE. [Suspect]
     Active Substance: DEXAMETHASONE
     Indication: PRODUCT USED FOR UNKNOWN INDICATION
     Dosage: 4 MILLIGRAM
     Route: 048
  8. PERINDOPRIL [Suspect]
     Active Substance: PERINDOPRIL
     Indication: CARDIAC FAILURE CHRONIC
     Dosage: UNK
     Route: 065
  9. AMYLASE/LIPASE/PROTEASE [Suspect]
     Active Substance: AMYLASE\LIPASE\PROTEASE
     Indication: PRODUCT USED FOR UNKNOWN INDICATION
     Dosage: UNK
     Route: 065

REACTIONS (12)
  - Pancreatic neoplasm [Fatal]
  - Hypotonia [Fatal]
  - Diarrhoea [Fatal]
  - Dizziness [Fatal]
  - Visual acuity reduced [Fatal]
  - Urinary incontinence [Fatal]
  - Decreased appetite [Fatal]
  - Hypotension [Fatal]
  - Nausea [Fatal]
  - Weight decreased [Fatal]
  - Asthenia [Fatal]
  - Memory impairment [Fatal]
